FAERS Safety Report 18948962 (Version 1)
Quarter: 2021Q1

REPORT INFORMATION
  Report Type: Spontaneous
  Country: US (occurrence: US)
  Receive Date: 20210227
  Receipt Date: 20210227
  Transmission Date: 20210420
  Serious: Yes (Life-Threatening, Hospitalization, Other)
  Sender: FDA-Public Use
  Company Number: US-STRIDES ARCOLAB LIMITED-2021SP002506

PATIENT
  Age: 42 Year
  Sex: Female

DRUGS (6)
  1. TACROLIMUS. [Suspect]
     Active Substance: TACROLIMUS
     Indication: GRAFT VERSUS HOST DISEASE
     Dosage: UNK
     Route: 065
  2. CYCLOSPORINE. [Suspect]
     Active Substance: CYCLOSPORINE
     Indication: GRAFT VERSUS HOST DISEASE
     Dosage: UNK
     Route: 065
  3. CYCLOSPORINE. [Suspect]
     Active Substance: CYCLOSPORINE
     Indication: ALLOGENIC STEM CELL TRANSPLANTATION
  4. TACROLIMUS. [Suspect]
     Active Substance: TACROLIMUS
     Indication: ALLOGENIC STEM CELL TRANSPLANTATION
  5. MYCOPHENOLATE MOFETIL. [Suspect]
     Active Substance: MYCOPHENOLATE MOFETIL
     Indication: ALLOGENIC STEM CELL TRANSPLANTATION
  6. MYCOPHENOLATE MOFETIL. [Suspect]
     Active Substance: MYCOPHENOLATE MOFETIL
     Indication: GRAFT VERSUS HOST DISEASE
     Dosage: UNK
     Route: 065

REACTIONS (7)
  - Microangiopathic haemolytic anaemia [Unknown]
  - Thrombotic thrombocytopenic purpura [Unknown]
  - Pharyngeal necrosis [Recovered/Resolved]
  - Pneumonia pneumococcal [Recovered/Resolved]
  - Septic shock [Unknown]
  - Autoimmune haemolytic anaemia [Unknown]
  - Off label use [Unknown]
